FAERS Safety Report 20990252 (Version 37)
Quarter: 2025Q1

REPORT INFORMATION
  Report Type: Report from Study
  Country: JP (occurrence: JP)
  Receive Date: 20220622
  Receipt Date: 20250331
  Transmission Date: 20250409
  Serious: Yes (Hospitalization, Other)
  Sender: ROCHE
  Company Number: JP-CHUGAI-2022022667

PATIENT
  Age: 52 Year
  Sex: Female
  Weight: 49.9 kg

DRUGS (2)
  1. TECENTRIQ [Suspect]
     Active Substance: ATEZOLIZUMAB
     Indication: Triple negative breast cancer
     Route: 042
     Dates: start: 20220509
  2. PACLITAXEL [Suspect]
     Active Substance: PACLITAXEL
     Indication: Triple negative breast cancer
     Dosage: 100 MILLIGRAM/SQ. METER, ONCE/4WEEKS
     Route: 042
     Dates: start: 20220509

REACTIONS (13)
  - Neutropenia [Recovered/Resolved]
  - Anaemia [Not Recovered/Not Resolved]
  - Proteinuria [Recovered/Resolved]
  - Adrenal insufficiency [Recovering/Resolving]
  - Cystitis [Recovered/Resolved]
  - White blood cell count decreased [Recovered/Resolved]
  - Oedema peripheral [Not Recovered/Not Resolved]
  - Alopecia [Not Recovered/Not Resolved]
  - Pyrexia [Recovered/Resolved]
  - Neuropathy peripheral [Not Recovered/Not Resolved]
  - Fatigue [Not Recovered/Not Resolved]
  - Cough [Recovering/Resolving]
  - Tracheitis [Recovered/Resolved]

NARRATIVE: CASE EVENT DATE: 20220523
